FAERS Safety Report 9781433 (Version 1)
Quarter: 2013Q4

REPORT INFORMATION
  Report Type: Spontaneous
  Country: DK (occurrence: DK)
  Receive Date: 20131224
  Receipt Date: 20131224
  Transmission Date: 20140711
  Serious: Yes (Hospitalization)
  Sender: FDA-Public Use
  Company Number: PHHY2013DK148334

PATIENT
  Age: 69 Year
  Sex: Male

DRUGS (17)
  1. LAMOTRIGIN 1A PHARMA [Suspect]
     Indication: EPILEPSY
     Dosage: 100 MG, BID
     Route: 048
     Dates: start: 20100215
  2. PENOMAX [Concomitant]
     Indication: URINARY TRACT INFECTION
     Dates: start: 20131215
  3. IMOCLONE [Concomitant]
     Indication: SLEEP DISORDER
  4. ONDANSETRON [Concomitant]
     Indication: NAUSEA
  5. OXYNORM [Concomitant]
     Indication: PAIN
  6. THIAMIN [Concomitant]
     Indication: VITAMIN SUPPLEMENTATION
  7. VITAMIN B NOS [Concomitant]
     Indication: VITAMIN SUPPLEMENTATION
  8. CITALOPRAM [Concomitant]
     Indication: DEPRESSION
  9. PANTOPRAZOL ACTAVIS [Concomitant]
     Indication: DYSPEPSIA
  10. PERILAX [Concomitant]
     Indication: CONSTIPATION
  11. PERSANTIN [Concomitant]
     Indication: THROMBOSIS PROPHYLAXIS
  12. HJERTEMAGNYL [Concomitant]
     Indication: THROMBOSIS PROPHYLAXIS
  13. AMLODIPIN [Concomitant]
     Indication: BLOOD PRESSURE
  14. SIMVASTATIN [Concomitant]
     Indication: HYPERCHOLESTEROLAEMIA
  15. PONDOCILLIN [Concomitant]
     Indication: INFECTION
  16. PINEX [Concomitant]
     Indication: PAIN
  17. OXYCODONE [Concomitant]
     Indication: PAIN

REACTIONS (3)
  - Oral candidiasis [Unknown]
  - Fatigue [Unknown]
  - Dry mouth [Not Recovered/Not Resolved]
